FAERS Safety Report 8135604-6 (Version None)
Quarter: 2012Q1

REPORT INFORMATION
  Report Type: 
  Country: None (occurrence: None)
  Receive Date: 20120214
  Receipt Date: 20120206
  Transmission Date: 20120608
  Serious: Yes (Hospitalization)
  Sender: FDA-Public Use
  Company Number: PHEH2012US003145

PATIENT
  Sex: Female

DRUGS (16)
  1. CARBIDOPA + LEVODOPA [Suspect]
     Dosage: 50/200MG EVERY 6 HOURS
     Route: 048
  2. COMPAZINE [Suspect]
     Route: 048
  3. UKNOWN APPETITE MEDICATION [Suspect]
     Indication: DECREASED APPETITE
  4. TOPAMAX [Concomitant]
  5. LEXAPRO [Concomitant]
  6. CARBIDOPA + LEVODOPA [Suspect]
     Dosage: 50/200MG EVERY 3 HOURS
     Route: 048
  7. NEXIUM [Concomitant]
  8. TEMAZEPAM [Concomitant]
  9. CARBIDOPA + LEVODOPA [Suspect]
     Dosage: 50/200MG EVERY 4 HOURS
     Route: 048
  10. SINEMET [Suspect]
     Route: 048
  11. UNKNOWN LOW BLOOD PRESSUR MEDICATION [Suspect]
     Indication: HYPOTENSION
  12. XANAX [Suspect]
     Indication: ANXIETY
     Dosage: 1 MG, QID
     Route: 048
  13. XANAX [Suspect]
     Dosage: 0.25 MG, BID
  14. STALEVO 100 [Suspect]
     Indication: PARKINSON'S DISEASE
     Dosage: 200/50/200MG 2 TO 3 TIMES A DAY
     Route: 048
  15. COMTAN [Suspect]
     Indication: PARKINSON'S DISEASE
     Dosage: 200 MG, UNK
     Route: 048
     Dates: end: 20120203
  16. LYRICA [Concomitant]

REACTIONS (15)
  - TREMOR [None]
  - STARING [None]
  - THROMBOSIS [None]
  - OEDEMA PERIPHERAL [None]
  - DIZZINESS [None]
  - HYPOTENSION [None]
  - MUSCULOSKELETAL STIFFNESS [None]
  - DYSPHAGIA [None]
  - PARKINSON'S DISEASE [None]
  - DRUG INEFFECTIVE [None]
  - WRONG TECHNIQUE IN DRUG USAGE PROCESS [None]
  - ASTHENIA [None]
  - FEELING ABNORMAL [None]
  - DECREASED APPETITE [None]
  - INCORRECT DOSE ADMINISTERED [None]
